FAERS Safety Report 5593777-3 (Version None)
Quarter: 2008Q1

REPORT INFORMATION
  Report Type: 
  Country: None (occurrence: None)
  Receive Date: 20080116
  Receipt Date: 20080111
  Transmission Date: 20080703
  Serious: Yes (Hospitalization)
  Sender: FDA-Public Use
  Company Number: US-BOEHRINGER INGELHEIM PHARMACEUTICALS, INC.-2008-BP-00576BP

PATIENT
  Sex: Male

DRUGS (4)
  1. SPIRIVA [Suspect]
     Indication: CHRONIC OBSTRUCTIVE PULMONARY DISEASE
     Route: 055
     Dates: start: 20070601
  2. XOPENEX [Concomitant]
  3. NEXIUM [Concomitant]
  4. VITAMIN CAP [Concomitant]

REACTIONS (3)
  - BLOOD PRESSURE INCREASED [None]
  - PALPITATIONS [None]
  - TACHYCARDIA [None]
